FAERS Safety Report 25590288 (Version 1)
Quarter: 2025Q3

REPORT INFORMATION
  Report Type: Report from Study
  Country: EU (occurrence: EU)
  Receive Date: 20250722
  Receipt Date: 20250722
  Transmission Date: 20251021
  Serious: Yes (Hospitalization)
  Sender: ABBVIE
  Company Number: EU-ABBVIE-6303884

PATIENT
  Age: 75 Year
  Sex: Male
  Weight: 64 kg

DRUGS (6)
  1. FOSCARBIDOPA\FOSLEVODOPA [Suspect]
     Active Substance: FOSCARBIDOPA\FOSLEVODOPA
     Indication: Parkinson^s disease
     Route: 058
     Dates: start: 20250519
  2. NITROLINGUAL [Concomitant]
     Active Substance: NITROGLYCERIN
     Indication: Vasospasm
  3. LEVOTHYROXINE SODIUM [Concomitant]
     Active Substance: LEVOTHYROXINE SODIUM
     Indication: Hypothyroidism
  4. PRALUENT [Concomitant]
     Active Substance: ALIROCUMAB
     Indication: Hyperlipidaemia
  5. EXELON [Concomitant]
     Active Substance: RIVASTIGMINE TARTRATE
     Indication: Product used for unknown indication
  6. ASPIRIN [Concomitant]
     Active Substance: ASPIRIN
     Indication: Vasospasm

REACTIONS (9)
  - Head injury [Unknown]
  - Gait disturbance [Unknown]
  - Hallucination [Unknown]
  - Fall [Recovering/Resolving]
  - On and off phenomenon [Recovering/Resolving]
  - Abnormal dreams [Unknown]
  - Therapeutic product effect incomplete [Unknown]
  - Therapeutic product effect variable [Unknown]
  - Fatigue [Unknown]

NARRATIVE: CASE EVENT DATE: 20250101
